FAERS Safety Report 4494890-4 (Version None)
Quarter: 2004Q4

REPORT INFORMATION
  Report Type: 
  Country: None (occurrence: None)
  Receive Date: 20041103
  Receipt Date: 20041021
  Transmission Date: 20050328
  Serious: Yes (Hospitalization)
  Sender: FDA-Public Use
  Company Number: 202781

PATIENT
  Age: 45 Year
  Sex: Female
  Weight: 71.6683 kg

DRUGS (16)
  1. AVONEX [Suspect]
     Indication: MULTIPLE SCLEROSIS
     Dosage: 30 MCG QW IM
     Route: 030
     Dates: start: 20040614, end: 20040801
  2. PREVACID [Concomitant]
  3. PERCOCET [Concomitant]
  4. EFFEXOR [Concomitant]
  5. KLONOPIN [Concomitant]
  6. NEURONTIN [Concomitant]
  7. WELLBUTRIN [Concomitant]
  8. TOPAMAX [Concomitant]
  9. PREDNISONE [Concomitant]
  10. SEROQUEL [Concomitant]
  11. COD LIVER OIL [Concomitant]
  12. ULTRAM [Concomitant]
  13. MUCI-LAX [Concomitant]
  14. ZANAFLEX [Concomitant]
  15. MIRALAX [Concomitant]
  16. CALCIUM CARBONATE [Concomitant]

REACTIONS (12)
  - ARTHRALGIA [None]
  - CHEST PAIN [None]
  - ELECTROCARDIOGRAM ST-T CHANGE [None]
  - FLUSHING [None]
  - GASTROINTESTINAL DISORDER [None]
  - HEADACHE [None]
  - HEPATIC ENZYME INCREASED [None]
  - HYPOTENSION [None]
  - ISCHAEMIA [None]
  - MUSCLE SPASMS [None]
  - OESOPHAGEAL SPASM [None]
  - PAIN IN JAW [None]
